FAERS Safety Report 15124086 (Version 1)
Quarter: 2018Q3

REPORT INFORMATION
  Report Type: Spontaneous
  Country: US (occurrence: US)
  Receive Date: 20180710
  Receipt Date: 20180710
  Transmission Date: 20181010
  Serious: No
  Sender: FDA-Public Use
  Company Number: US-ELI_LILLY_AND_COMPANY-US201807002016

PATIENT
  Sex: Female

DRUGS (6)
  1. HUMULIN N [Suspect]
     Active Substance: INSULIN HUMAN
     Dosage: 28, UNK, UNKNOWN
     Route: 065
  2. HUMULIN N [Suspect]
     Active Substance: INSULIN HUMAN
     Dosage: 28, UNK, UNKNOWN
     Route: 065
     Dates: start: 201802
  3. HUMULIN N [Suspect]
     Active Substance: INSULIN HUMAN
     Indication: PRODUCT USED FOR UNKNOWN INDICATION
     Dosage: UNK, UNKNOWN
     Route: 065
     Dates: start: 201802
  4. HUMULIN N [Suspect]
     Active Substance: INSULIN HUMAN
     Dosage: 11, UNK, UNKNOWN
     Route: 065
     Dates: start: 201802
  5. HUMULIN N [Suspect]
     Active Substance: INSULIN HUMAN
     Dosage: UNK, UNKNOWN
     Route: 065
  6. HUMULIN N [Suspect]
     Active Substance: INSULIN HUMAN
     Dosage: 11, UNK, UNKNOWN
     Route: 065

REACTIONS (3)
  - Depression [Not Recovered/Not Resolved]
  - Blood glucose increased [Recovered/Resolved]
  - Injection site pain [Not Recovered/Not Resolved]
